FAERS Safety Report 6125438-6 (Version None)
Quarter: 2009Q1

REPORT INFORMATION
  Report Type: 
  Country: None (occurrence: None)
  Receive Date: 20090320
  Receipt Date: 20090318
  Transmission Date: 20090719
  Serious: Yes (Hospitalization)
  Sender: FDA-Public Use
  Company Number: CA-BIOGENIDEC-2009BI001979

PATIENT
  Age: 66 Year
  Sex: Female

DRUGS (2)
  1. TYSABRI [Suspect]
     Indication: MULTIPLE SCLEROSIS
     Route: 042
     Dates: start: 20090201
  2. TYSABRI [Suspect]
     Route: 042
     Dates: start: 20081217, end: 20090101

REACTIONS (4)
  - ASTHENIA [None]
  - CATARACT [None]
  - GAIT DISTURBANCE [None]
  - VISUAL IMPAIRMENT [None]
